FAERS Safety Report 9068960 (Version 3)
Quarter: 2013Q1

REPORT INFORMATION
  Report Type: Spontaneous
  Country: DE (occurrence: None)
  Receive Date: 20130122
  Receipt Date: 20130327
  Transmission Date: 20140127
  Serious: Yes (Hospitalization)
  Sender: FDA-Public Use
  Company Number: 2013MPI00003

PATIENT
  Age: 20 Year
  Sex: Male

DRUGS (9)
  1. BRENTUXIMAB VEDOTIN (BRENTUXIMAB VEDOTIN) INJECTION [Suspect]
     Indication: HODGKIN^S DISEASE
     Route: 042
     Dates: start: 20121220, end: 20121220
  2. ETOPOSIDE (ETOPOSIDE) [Suspect]
     Indication: HODGKIN^S DISEASE
     Dates: start: 20121221, end: 20121223
  3. DOXORUBICIN (DOXORUBICIN) (DOXORUBICIN) [Suspect]
     Indication: HODGKIN^S DISEASE
     Dosage: 40 MG/M2, UNK
     Dates: start: 20121221, end: 20121221
  4. CYCLOPHOSPHAMIDE (CYCLOPHOSPHAMIDE) [Suspect]
     Indication: HODGKIN^S DISEASE
     Dosage: 1250 MG/M2, UNK
     Dates: start: 20121221, end: 20121221
  5. DACARBAZINE [Suspect]
     Indication: HODGKIN^S DISEASE
     Dosage: 500 MG/M2, UNK
     Dates: start: 20121222, end: 20121223
  6. DEXAMETHASONE (DEXAMETHASONE) [Suspect]
     Indication: HODGKIN^S DISEASE
     Dates: start: 20121221, end: 20121224
  7. ACICLOVIR [Concomitant]
  8. CIPRO (CIPROFLOXACIN HYDROCHLORIDE) [Concomitant]
  9. PANTOZOL (ERYTHROMYCIN ETHYLSUCCINATE, SULFAFURAZOLE) [Concomitant]

REACTIONS (6)
  - Febrile bone marrow aplasia [None]
  - Anaemia [None]
  - Ear pain [None]
  - Throat irritation [None]
  - Febrile neutropenia [None]
  - C-reactive protein increased [None]
